FAERS Safety Report 20735500 (Version 2)
Quarter: 2022Q2

REPORT INFORMATION
  Report Type: Spontaneous
  Country: JP (occurrence: JP)
  Receive Date: 20220421
  Receipt Date: 20220425
  Transmission Date: 20220721
  Serious: Yes (Death, Hospitalization, Other)
  Sender: FDA-Public Use
  Company Number: JP-NBI-S202200070BIPI

PATIENT
  Age: 8 Decade
  Sex: Male

DRUGS (1)
  1. OFEV [Suspect]
     Active Substance: NINTEDANIB
     Indication: Idiopathic pulmonary fibrosis
     Route: 048
     Dates: start: 202104, end: 202106

REACTIONS (5)
  - Lung cyst [Fatal]
  - Idiopathic pulmonary fibrosis [Unknown]
  - Decreased appetite [Unknown]
  - Dehydration [Unknown]
  - Prerenal failure [Unknown]

NARRATIVE: CASE EVENT DATE: 20210601
